FAERS Safety Report 18514662 (Version 5)
Quarter: 2021Q1

REPORT INFORMATION
  Report Type: Spontaneous
  Country: JP (occurrence: JP)
  Receive Date: 20201117
  Receipt Date: 20210315
  Transmission Date: 20210419
  Serious: Yes (Life-Threatening, Hospitalization, Other)
  Sender: FDA-Public Use
  Company Number: JP-009507513-2011JPN001698J

PATIENT
  Age: 70 Year
  Sex: Male
  Weight: 72 kg

DRUGS (14)
  1. KEYTRUDA [Suspect]
     Active Substance: PEMBROLIZUMAB
     Indication: LUNG ADENOCARCINOMA STAGE IV
     Dosage: 200 MILLIGRAM, Q3W
     Route: 041
     Dates: start: 20191107, end: 20200715
  2. CARBOPLATIN. [Suspect]
     Active Substance: CARBOPLATIN
     Indication: LUNG ADENOCARCINOMA STAGE IV
     Dosage: 450 MILLIGRAM, Q3W
     Route: 041
     Dates: start: 20191107, end: 20191127
  3. ALIMTA [Suspect]
     Active Substance: PEMETREXED DISODIUM
     Indication: LUNG ADENOCARCINOMA STAGE IV
     Dosage: 950 MILLIGRAM, Q3W
     Route: 041
     Dates: start: 20191107, end: 20191127
  4. PITAVASTATIN CALCIUM [Concomitant]
     Active Substance: PITAVASTATIN CALCIUM
     Dosage: 2 DOSAGE FORM, QD
     Route: 048
     Dates: start: 201908
  5. ASVERIN [Concomitant]
     Dosage: 1 DOSAGE FORM, TID
     Route: 048
     Dates: start: 202007
  6. ENALAPRIL MALEATE. [Concomitant]
     Active Substance: ENALAPRIL MALEATE
     Dosage: 1 DOSAGE FORM, QD
     Route: 048
     Dates: start: 201908
  7. ALIMTA [Suspect]
     Active Substance: PEMETREXED DISODIUM
     Dosage: 790 MILLIGRAM, Q3W
     Route: 041
     Dates: start: 20191128, end: 20200617
  8. MIYA?BM [Concomitant]
     Active Substance: CLOSTRIDIUM BUTYRICUM SPORES STRAIN M-55
     Dosage: 2 DOSAGE FORM, TID
     Route: 048
     Dates: start: 202007
  9. DEXTROMETHORPHAN HYDROBROMIDE. [Concomitant]
     Active Substance: DEXTROMETHORPHAN HYDROBROMIDE
     Dosage: 2 DOSAGE FORM, TID
     Route: 048
     Dates: start: 202007
  10. CARVEDILOL. [Concomitant]
     Active Substance: CARVEDILOL
     Dosage: 1 DOSAGE FORM, QD
     Route: 048
     Dates: start: 201908
  11. CLOPIDOGREL [Concomitant]
     Active Substance: CLOPIDOGREL BISULFATE
     Dosage: 1 DOSAGE FORM, QD
     Route: 048
     Dates: start: 201908
  12. ALIMTA [Suspect]
     Active Substance: PEMETREXED DISODIUM
     Dosage: 600 MILLIGRAM, Q3W
     Route: 041
     Dates: start: 20200625, end: 20200715
  13. CARBOPLATIN. [Suspect]
     Active Substance: CARBOPLATIN
     Dosage: 380 MILLIGRAM, Q3W
     Route: 041
     Dates: start: 20191128, end: 20200129
  14. SENNOSIDE [Concomitant]
     Active Substance: SENNOSIDES
     Dosage: 2 DOSAGE FORM, QD
     Route: 048
     Dates: start: 202007

REACTIONS (5)
  - Decreased appetite [Unknown]
  - Disseminated intravascular coagulation [Recovered/Resolved]
  - Physical deconditioning [Unknown]
  - Haemophagocytic lymphohistiocytosis [Recovered/Resolved]
  - Dehydration [Unknown]

NARRATIVE: CASE EVENT DATE: 202006
